FAERS Safety Report 17982023 (Version 3)
Quarter: 2020Q3

REPORT INFORMATION
  Report Type: Report from Study
  Country: US (occurrence: US)
  Receive Date: 20200706
  Receipt Date: 20200916
  Transmission Date: 20201103
  Serious: Yes (Other)
  Sender: FDA-Public Use
  Company Number: US-ROCHE-2602648

PATIENT
  Age: 81 Year
  Sex: Male
  Weight: 96.8 kg

DRUGS (3)
  1. VENETOCLAX. [Suspect]
     Active Substance: VENETOCLAX
     Indication: CHRONIC LYMPHOCYTIC LEUKAEMIA
     Dosage: 20 MG PO QD DAYS 1?7 CYCLE 3, 50 MG PO QD DAYS 8?14, CYCLE 3, 100 MG PO QD DAYS 15?21, CYCLE 3, 200
     Route: 048
     Dates: start: 20200513
  2. OBINUTUZUMAB. [Suspect]
     Active Substance: OBINUTUZUMAB
     Indication: CHRONIC LYMPHOCYTIC LEUKAEMIA
     Dosage: 100 MG IV ON C1D1, 900 MG IV ON C1D2, 1000 MG IV ON C1D8 + C1D15, C2?6D1?LAST DOSE ADMINISTERED PRIO
     Route: 042
     Dates: start: 20200318, end: 20200610
  3. IBRUTINIB [Suspect]
     Active Substance: IBRUTINIB
     Indication: CHRONIC LYMPHOCYTIC LEUKAEMIA
     Dosage: 420 MG PO QD FOR 15 CYCLES?LAST DOSE ADMINISTERED PRIOR TO EVENT ON 20/MAY/2020?TOTAL DOSE ADMINISTE
     Route: 048
     Dates: start: 20200318

REACTIONS (4)
  - Hypertension [Recovered/Resolved]
  - Back pain [Recovered/Resolved]
  - Lymphocyte count decreased [Recovered/Resolved]
  - Tumour lysis syndrome [Recovered/Resolved]

NARRATIVE: CASE EVENT DATE: 20200520
